FAERS Safety Report 7390068-5 (Version None)
Quarter: 2011Q1

REPORT INFORMATION
  Report Type: 
  Country: None (occurrence: None)
  Receive Date: 20110324
  Receipt Date: 20110309
  Transmission Date: 20110831
  Serious: Yes (Hospitalization, Other)
  Sender: FDA-Public Use
  Company Number: 2011SP000763

PATIENT
  Age: 85 Year
  Sex: Male
  Weight: 76.7 kg

DRUGS (14)
  1. LASIX [Concomitant]
  2. PEPCID [Concomitant]
  3. PREDNISONE [Concomitant]
  4. OMNARIS [Suspect]
     Indication: RHINORRHOEA
     Dosage: 200 UG; HS; NASAL;200 UG; HS; NASAL;
     Route: 045
     Dates: start: 20100101, end: 20100101
  5. OMNARIS [Suspect]
     Indication: HYPERSENSITIVITY
     Dosage: 200 UG; HS; NASAL;200 UG; HS; NASAL;
     Route: 045
     Dates: start: 20100101, end: 20100101
  6. OMNARIS [Suspect]
     Indication: LACRIMATION INCREASED
     Dosage: 200 UG; HS; NASAL;200 UG; HS; NASAL;
     Route: 045
     Dates: start: 20100101, end: 20100101
  7. OMNARIS [Suspect]
     Indication: RHINORRHOEA
     Dosage: 200 UG; HS; NASAL;200 UG; HS; NASAL;
     Route: 045
     Dates: start: 20110101
  8. OMNARIS [Suspect]
     Indication: HYPERSENSITIVITY
     Dosage: 200 UG; HS; NASAL;200 UG; HS; NASAL;
     Route: 045
     Dates: start: 20110101
  9. OMNARIS [Suspect]
     Indication: LACRIMATION INCREASED
     Dosage: 200 UG; HS; NASAL;200 UG; HS; NASAL;
     Route: 045
     Dates: start: 20110101
  10. DRONEDARONE [Concomitant]
  11. DIOVAN [Concomitant]
  12. LAXATIVES [Concomitant]
  13. TEMAZEPAM [Concomitant]
  14. COUMADIN [Concomitant]

REACTIONS (3)
  - MIDDLE INSOMNIA [None]
  - STREPTOCOCCAL INFECTION [None]
  - RHINITIS [None]
